FAERS Safety Report 12818152 (Version 1)
Quarter: 2016Q4

REPORT INFORMATION
  Report Type: Report from Study
  Country: JP (occurrence: JP)
  Receive Date: 20161005
  Receipt Date: 20161005
  Transmission Date: 20170207
  Serious: Yes (Death, Hospitalization)
  Sender: FDA-Public Use
  Company Number: JP-B.I. PHARMACEUTICALS,INC./RIDGEFIELD-2014-BI-62436NB

PATIENT
  Age: 71 Year
  Sex: Male
  Weight: 70 kg

DRUGS (2)
  1. GILOTRIF [Suspect]
     Active Substance: AFATINIB
     Indication: LUNG ADENOCARCINOMA
     Route: 048
     Dates: start: 20141101, end: 20141110
  2. GILOTRIF [Suspect]
     Active Substance: AFATINIB
     Route: 048
     Dates: start: 20141118, end: 20160122

REACTIONS (9)
  - Diarrhoea [Recovered/Resolved]
  - Stomatitis [Recovered/Resolved]
  - Diarrhoea [Recovered/Resolved]
  - Acne [Recovered/Resolved]
  - Cerebral infarction [Not Recovered/Not Resolved]
  - Rash [Recovered/Resolved]
  - Pneumothorax [Fatal]
  - Interstitial lung disease [Not Recovered/Not Resolved]
  - Paronychia [Recovered/Resolved]

NARRATIVE: CASE EVENT DATE: 20141102
